FAERS Safety Report 5084955-0 (Version None)
Quarter: 2006Q3

REPORT INFORMATION
  Report Type: 
  Country: None (occurrence: None)
  Receive Date: 20060821
  Receipt Date: 20060811
  Transmission Date: 20061208
  Serious: Yes (Death, Hospitalization)
  Sender: FDA-Public Use
  Company Number: DE-ABBOTT-06P-062-0340279-00

PATIENT
  Sex: Male
  Weight: 67 kg

DRUGS (15)
  1. ZEMPLAR [Suspect]
     Indication: HYPERPARATHYROIDISM SECONDARY
     Route: 042
     Dates: start: 20060416
  2. ZEMPLAR [Suspect]
     Route: 042
     Dates: start: 20051216, end: 20060109
  3. ZEMPLAR [Suspect]
     Route: 042
     Dates: start: 20060109, end: 20060116
  4. ZEMPLAR [Suspect]
     Route: 042
     Dates: start: 20060116, end: 20060216
  5. ZEMPLAR [Suspect]
     Route: 042
     Dates: start: 20060216, end: 20060316
  6. ZEMPLAR [Suspect]
     Route: 042
     Dates: start: 20060316, end: 20060416
  7. FUROSEMIDE [Concomitant]
     Indication: DRUG USE FOR UNKNOWN INDICATION
     Route: 048
  8. ALUMINIUM HYDROXIDE GEL [Concomitant]
     Indication: HYPERPARATHYROIDISM SECONDARY
     Route: 048
  9. VERAPAMIL HYDROCHLORIDE [Concomitant]
     Indication: DRUG USE FOR UNKNOWN INDICATION
     Route: 048
  10. GLYCERYL TRINITRATE [Concomitant]
     Indication: DRUG USE FOR UNKNOWN INDICATION
     Route: 060
  11. MOXONIDINE [Concomitant]
     Indication: DRUG USE FOR UNKNOWN INDICATION
     Route: 048
  12. SIMVASTATIN [Concomitant]
     Indication: DRUG USE FOR UNKNOWN INDICATION
     Route: 048
  13. ESOMEPRAZOLE MAGNESIUM [Concomitant]
     Indication: DRUG USE FOR UNKNOWN INDICATION
     Route: 048
  14. SEVELAMER HYDROCHLORIDE [Concomitant]
     Indication: DRUG USE FOR UNKNOWN INDICATION
     Route: 048
  15. CLOPIDOGREL BISULFATE [Concomitant]
     Indication: DRUG USE FOR UNKNOWN INDICATION
     Route: 048

REACTIONS (7)
  - BLOOD ALKALINE PHOSPHATASE INCREASED [None]
  - BLOOD PARATHYROID HORMONE INCREASED [None]
  - BLOOD PHOSPHORUS INCREASED [None]
  - CARDIAC FAILURE [None]
  - PULMONARY CONGESTION [None]
  - SHOCK [None]
  - UNEVALUABLE EVENT [None]
